FAERS Safety Report 6169178-6 (Version None)
Quarter: 2009Q2

REPORT INFORMATION
  Report Type: 
  Country: None (occurrence: None)
  Receive Date: 20090427
  Receipt Date: 20090423
  Transmission Date: 20091009
  Serious: Yes (Life-Threatening)
  Sender: FDA-Public Use
  Company Number: GB-ASTRAZENECA-2009GB00937

PATIENT
  Sex: Female
  Weight: 80 kg

DRUGS (6)
  1. OMEPRAZOLE [Suspect]
     Indication: GASTRIC PH DECREASED
     Route: 048
     Dates: start: 20090313, end: 20090321
  2. OMEPRAZOLE [Suspect]
     Indication: MALAISE
     Route: 048
     Dates: start: 20090313, end: 20090321
  3. ACETAMINOPHEN W/ CODEINE [Concomitant]
     Indication: PAIN
     Route: 048
  4. RAMIPRIL [Concomitant]
     Indication: HYPERTENSION
     Route: 048
  5. TEMAZEPAM [Concomitant]
     Indication: INSOMNIA
     Route: 048
  6. TRAMADOL HCL [Concomitant]
     Indication: PAIN
     Route: 048
     Dates: start: 20081101

REACTIONS (3)
  - FEELING COLD [None]
  - HYPOKINESIA [None]
  - MUSCLE SPASMS [None]
